FAERS Safety Report 8055111-9 (Version None)
Quarter: 2011Q4

REPORT INFORMATION
  Report Type: 
  Country: None (occurrence: None)
  Receive Date: 20111216
  Receipt Date: 20110629
  Transmission Date: 20120403
  Serious: Yes (Other)
  Sender: FDA-Public Use
  Company Number: 288512USA

PATIENT
  Age: 50 Year
  Sex: Female
  Weight: 77.1115 kg

DRUGS (2)
  1. PARAGARD T 380A [Suspect]
     Indication: CONTRACEPTION
     Dosage: I.U.
     Route: 015
     Dates: start: 20040801, end: 20110527
  2. PRINZIDE [Concomitant]

REACTIONS (7)
  - MENSTRUATION DELAYED [None]
  - MEDICAL DEVICE COMPLICATION [None]
  - HYPERTENSION [None]
  - DEVICE DISLOCATION [None]
  - UTERINE LEIOMYOMA [None]
  - MENSTRUATION IRREGULAR [None]
  - DEVICE BREAKAGE [None]
